FAERS Safety Report 4555323-2 (Version None)
Quarter: 2005Q1

REPORT INFORMATION
  Report Type: 
  Country: None (occurrence: None)
  Receive Date: 20041228
  Receipt Date: 20040928
  Transmission Date: 20050727
  Serious: Yes (Hospitalization)
  Sender: FDA-Public Use
  Company Number: 002790

PATIENT
  Age: 40 Year
  Sex: Female
  Weight: 94.3 kg

DRUGS (6)
  1. SEASONALE [Suspect]
     Indication: MENOMETRORRHAGIA
     Dosage: 1.00 TABLET, QD, ORAL
     Route: 048
     Dates: start: 20040801, end: 20040906
  2. IRON [Concomitant]
  3. DARVOCET-N (PARACETAMOL, DEXTROPROPOOXYPHENE NAPSILATE) [Concomitant]
  4. FLONASE [Concomitant]
  5. ASTELIN [Concomitant]
  6. ALLEGRA-D (PSEUDOEPHEDRINE HYDROCHLORIDE, FEXOFENADINE) [Concomitant]

REACTIONS (3)
  - DEEP VEIN THROMBOSIS [None]
  - GROIN PAIN [None]
  - PAIN IN EXTREMITY [None]
